FAERS Safety Report 9681293 (Version 1)
Quarter: 2013Q4

REPORT INFORMATION
  Report Type: Spontaneous
  Country: US (occurrence: None)
  Receive Date: 20131108
  Receipt Date: 20131108
  Transmission Date: 20140711
  Serious: Yes (Other)
  Sender: FDA-Public Use
  Company Number: None

PATIENT
  Age: 42 Year
  Sex: Female

DRUGS (1)
  1. ZOLOFT [Suspect]
     Dosage: 1 PILL ONCE DAILY TAKEN BY MOUTH
     Route: 048
     Dates: start: 20090529, end: 20091107

REACTIONS (22)
  - Hypotension [None]
  - Crying [None]
  - Inappropriate affect [None]
  - Dysphonia [None]
  - Pressure of speech [None]
  - Alopecia [None]
  - Loss of consciousness [None]
  - Fall [None]
  - Somnolence [None]
  - Anxiety [None]
  - Memory impairment [None]
  - Tremor [None]
  - Sleep terror [None]
  - Night sweats [None]
  - Somnolence [None]
  - Fatigue [None]
  - Activities of daily living impaired [None]
  - Decreased appetite [None]
  - Weight increased [None]
  - Drug ineffective [None]
  - Headache [None]
  - Paraesthesia [None]
